FAERS Safety Report 7204102-6 (Version None)
Quarter: 2010Q4

REPORT INFORMATION
  Report Type: 
  Country: None (occurrence: None)
  Receive Date: 20101230
  Receipt Date: 20101221
  Transmission Date: 20110411
  Serious: Yes (Other)
  Sender: FDA-Public Use
  Company Number: FR-PFIZER INC-2010176214

PATIENT
  Age: 82 Year
  Sex: Female

DRUGS (6)
  1. LYRICA [Suspect]
     Indication: PERIPHERAL NERVE LESION
     Dosage: UNK
     Route: 048
     Dates: start: 20101025, end: 20101110
  2. PLAVIX [Concomitant]
     Dosage: UNK
     Route: 048
     Dates: start: 20050101
  3. SIMVASTATIN [Concomitant]
     Indication: HYPERCHOLESTEROLAEMIA
     Dosage: UNK
     Route: 048
     Dates: start: 20050101
  4. FOLIC ACID [Concomitant]
     Indication: MACROCYTOSIS
     Dosage: UNK
     Route: 048
     Dates: start: 20060101
  5. BONIVA [Concomitant]
     Indication: OSTEOPOROSIS
     Dosage: UNK
     Route: 048
     Dates: start: 20090101
  6. IDEOS [Concomitant]
     Indication: OSTEOPOROSIS
     Dosage: UNK
     Route: 048
     Dates: start: 20050101

REACTIONS (4)
  - HEADACHE [None]
  - INSOMNIA [None]
  - TACHYPHRENIA [None]
  - VISION BLURRED [None]
